FAERS Safety Report 7299666-0 (Version None)
Quarter: 2011Q1

REPORT INFORMATION
  Report Type: 
  Country: None (occurrence: None)
  Receive Date: 20110209
  Receipt Date: 20110125
  Transmission Date: 20110831
  Serious: Yes (Other)
  Sender: FDA-Public Use
  Company Number: AUR-APL-2011-00320

PATIENT
  Age: 26 Year
  Sex: Female

DRUGS (1)
  1. SIMVASTATIN [Suspect]

REACTIONS (4)
  - PREGNANCY [None]
  - ABORTION INDUCED [None]
  - DRUG EXPOSURE DURING PREGNANCY [None]
  - CAESAREAN SECTION [None]
